FAERS Safety Report 4897640-2 (Version None)
Quarter: 2006Q1

REPORT INFORMATION
  Report Type: 
  Country: None (occurrence: None)
  Receive Date: 20060130
  Receipt Date: 20060117
  Transmission Date: 20060701
  Serious: Yes (Other)
  Sender: FDA-Public Use
  Company Number: 2006009166

PATIENT

DRUGS (1)
  1. FLAGYL [Suspect]
     Indication: ILL-DEFINED DISORDER

REACTIONS (4)
  - CHEST PAIN [None]
  - MALAISE [None]
  - NAUSEA [None]
  - VOMITING [None]
